FAERS Safety Report 9623474 (Version 1)
Quarter: 2013Q4

REPORT INFORMATION
  Report Type: Spontaneous
  Country: US (occurrence: US)
  Receive Date: 20131015
  Receipt Date: 20131015
  Transmission Date: 20140711
  Serious: No
  Sender: FDA-Public Use
  Company Number: US-PURDUE-USA-2012-0089132

PATIENT
  Sex: Male

DRUGS (3)
  1. BUTRANS [Suspect]
     Indication: PAIN
     Dosage: UNK
     Route: 062
  2. HYDROMORPHONE HCL (SIMILAR TO 19-892) [Concomitant]
     Indication: PAIN
     Dosage: UNK
  3. PERCOCET                           /00446701/ [Concomitant]
     Indication: PAIN
     Dosage: UNK

REACTIONS (1)
  - Agitation [Unknown]
